FAERS Safety Report 6025513-0 (Version None)
Quarter: 2008Q4

REPORT INFORMATION
  Report Type: 
  Country: None (occurrence: None)
  Receive Date: 20081231
  Receipt Date: 20081218
  Transmission Date: 20090506
  Serious: Yes (Other)
  Sender: FDA-Public Use
  Company Number: ES-GENENTECH-274617

PATIENT
  Age: 76 Year
  Sex: Female

DRUGS (2)
  1. MABTHERA [Suspect]
     Indication: NON-HODGKIN'S LYMPHOMA
     Dosage: 663 MG, Q21D
     Route: 042
     Dates: start: 20081023, end: 20081023
  2. GENOXAL [Suspect]
     Indication: NON-HODGKIN'S LYMPHOMA
     Dosage: 967 MG, Q21D
     Route: 042
     Dates: start: 20081023, end: 20081023

REACTIONS (4)
  - ERYTHEMA [None]
  - HYPERHIDROSIS [None]
  - HYPERTENSION [None]
  - TACHYCARDIA [None]
